FAERS Safety Report 15297704 (Version 2)
Quarter: 2018Q3

REPORT INFORMATION
  Report Type: Spontaneous
  Country: AT (occurrence: AT)
  Receive Date: 20180820
  Receipt Date: 20180906
  Transmission Date: 20181010
  Serious: Yes (Death, Other)
  Sender: FDA-Public Use
  Company Number: AT-ELI_LILLY_AND_COMPANY-AT201808004840

PATIENT
  Sex: Female

DRUGS (12)
  1. CARBOPLATIN. [Suspect]
     Active Substance: CARBOPLATIN
     Indication: OVARIAN CANCER
     Dosage: UNK UNK, UNKNOWN
     Route: 065
     Dates: start: 201410, end: 201502
  2. TAXOL [Suspect]
     Active Substance: PACLITAXEL
     Indication: OVARIAN CANCER
     Dosage: UNK UNK, UNKNOWN
     Route: 065
     Dates: start: 201410, end: 201502
  3. TAXOL [Suspect]
     Active Substance: PACLITAXEL
     Indication: LYMPHADENOPATHY
     Dosage: UNK UNK, WEEKLY (1/W)
     Route: 065
     Dates: start: 201612, end: 201706
  4. CARBOPLATIN. [Suspect]
     Active Substance: CARBOPLATIN
     Dosage: UNK UNK, UNKNOWN
     Route: 065
     Dates: start: 201802, end: 201806
  5. AVASTIN [Suspect]
     Active Substance: BEVACIZUMAB
     Indication: OVARIAN CANCER
     Dosage: UNK UNK, UNKNOWN
     Route: 065
     Dates: start: 201410, end: 201502
  6. GEMZAR [Suspect]
     Active Substance: GEMCITABINE HYDROCHLORIDE
     Indication: LYMPHADENOPATHY
     Dosage: UNK UNK, UNKNOWN
     Route: 065
  7. AVASTIN [Suspect]
     Active Substance: BEVACIZUMAB
     Indication: LYMPHADENOPATHY
     Dosage: UNK UNK, UNKNOWN
     Route: 065
     Dates: end: 20180202
  8. CAELYX [Suspect]
     Active Substance: DOXORUBICIN HYDROCHLORIDE
     Indication: OVARIAN CANCER
     Dosage: UNK UNK, UNKNOWN
     Route: 065
     Dates: end: 201606
  9. CARBOPLATIN. [Suspect]
     Active Substance: CARBOPLATIN
     Dosage: UNK UNK, UNKNOWN
     Route: 065
     Dates: end: 201606
  10. AVASTIN [Suspect]
     Active Substance: BEVACIZUMAB
     Dosage: UNK
     Route: 065
     Dates: start: 201511
  11. AFINITOR [Suspect]
     Active Substance: EVEROLIMUS
     Indication: PRODUCT USED FOR UNKNOWN INDICATION
     Dosage: 10 MG, DAILY
     Route: 065
  12. GEMZAR [Suspect]
     Active Substance: GEMCITABINE HYDROCHLORIDE
     Indication: OVARIAN CANCER
     Dosage: UNK, UNKNOWN
     Route: 065
     Dates: start: 201802, end: 201806

REACTIONS (5)
  - Metastases to meninges [Fatal]
  - Lymphadenopathy [Fatal]
  - Malignant neoplasm progression [Fatal]
  - Drug ineffective [Fatal]
  - Pleural effusion [Fatal]
